FAERS Safety Report 6928006-9 (Version None)
Quarter: 2010Q3

REPORT INFORMATION
  Report Type: 
  Country: None (occurrence: None)
  Receive Date: 20100812
  Receipt Date: 20100802
  Transmission Date: 20110219
  Serious: Yes (Hospitalization)
  Sender: FDA-Public Use
  Company Number: 016561

PATIENT
  Sex: Female
  Weight: 68 kg

DRUGS (4)
  1. CIMZIA [Suspect]
     Indication: CROHN'S DISEASE
     Dosage: (SUBCUTANEOUS)
     Route: 058
  2. CLONAZEPAM [Concomitant]
  3. PROZAC /00724401/ [Concomitant]
  4. OXYCODONE [Concomitant]

REACTIONS (2)
  - OVARIAN CYST [None]
  - PROCEDURAL PAIN [None]
